FAERS Safety Report 7362342-X (Version None)
Quarter: 2011Q1

REPORT INFORMATION
  Report Type: 
  Country: None (occurrence: None)
  Receive Date: 20110318
  Receipt Date: 20110308
  Transmission Date: 20110831
  Serious: Yes (Death)
  Sender: FDA-Public Use
  Company Number: US-CELGENEUS-163-21880-11022134

PATIENT
  Sex: Male

DRUGS (7)
  1. ACYCLOVIR [Concomitant]
     Route: 065
  2. TRAZODONE HCL [Concomitant]
     Route: 065
  3. REVLIMID [Suspect]
     Route: 048
     Dates: start: 20100801
  4. CALCIUM [Concomitant]
     Route: 065
  5. REVLIMID [Suspect]
     Indication: MULTIPLE MYELOMA
     Dosage: 25 MILLIGRAM
     Route: 048
     Dates: start: 20081201
  6. REVLIMID [Suspect]
     Dosage: 15 MILLIGRAM
     Route: 048
     Dates: start: 20090401
  7. THALOMID [Suspect]
     Indication: MULTIPLE MYELOMA
     Dosage: 50 MILLIGRAM
     Route: 048
     Dates: start: 20101001

REACTIONS (1)
  - DEATH [None]
